FAERS Safety Report 7306230-3 (Version None)
Quarter: 2011Q1

REPORT INFORMATION
  Report Type: 
  Country: None (occurrence: None)
  Receive Date: 20110222
  Receipt Date: 20110209
  Transmission Date: 20110831
  Serious: Yes (Hospitalization)
  Sender: FDA-Public Use
  Company Number: PHHY2011GB08466

PATIENT
  Age: 60 Year
  Sex: Female

DRUGS (14)
  1. PROMETHAZINE [Suspect]
     Indication: ANXIETY
     Dosage: 50 MG, UNK
  2. SERTRALINE [Suspect]
     Dosage: 100 MG, UNK
  3. ATENOLOL [Concomitant]
     Dosage: 25 MG, QD
  4. SIMVASTATIN [Concomitant]
     Dosage: 20 MG, QD
  5. DOSULEPIN [Concomitant]
     Indication: DEPRESSION
     Dosage: 50 MG, QD
  6. SERTRALINE [Suspect]
     Dosage: 150 MG, UNK
  7. LYRICA [Suspect]
     Dosage: 100 MG, TID
  8. ASPIRIN [Concomitant]
     Dosage: 75 MG, QD
  9. SERTRALINE [Suspect]
     Dosage: 100 MG, QD
  10. LYRICA [Suspect]
     Indication: ANXIETY
     Dosage: 50 MG, TID
     Dates: start: 20100501
  11. DIAZEPAM [Concomitant]
  12. CITALOPRAM [Concomitant]
  13. LYRICA [Suspect]
     Dosage: 200 MG, UNK
  14. LYRICA [Suspect]
     Dosage: 75 MG, TID
     Dates: start: 20100701, end: 20100801

REACTIONS (22)
  - AGGRESSION [None]
  - LETHARGY [None]
  - INITIAL INSOMNIA [None]
  - TENSION [None]
  - MACROCYTOSIS [None]
  - C-REACTIVE PROTEIN ABNORMAL [None]
  - MIDDLE INSOMNIA [None]
  - CYCLOTHYMIC DISORDER [None]
  - MUSCLE ATROPHY [None]
  - PAIN [None]
  - MALAISE [None]
  - SYNCOPE [None]
  - NAUSEA [None]
  - DEPRESSION [None]
  - GENERALISED ANXIETY DISORDER [None]
  - LEUKOPLAKIA ORAL [None]
  - DELUSION [None]
  - ANXIETY [None]
  - FATIGUE [None]
  - DIZZINESS [None]
  - IRRITABILITY [None]
  - FALL [None]
